FAERS Safety Report 17662587 (Version 2)
Quarter: 2020Q2

REPORT INFORMATION
  Report Type: Report from Study
  Country: US (occurrence: US)
  Receive Date: 20200413
  Receipt Date: 20200417
  Transmission Date: 20200713
  Serious: Yes (Hospitalization, Other)
  Sender: FDA-Public Use
  Company Number: US-BRISTOL-MYERS SQUIBB COMPANY-BMS-2020-029571

PATIENT
  Sex: Male

DRUGS (1)
  1. APIXABAN [Suspect]
     Active Substance: APIXABAN
     Indication: CEREBROVASCULAR ACCIDENT PROPHYLAXIS
     Route: 065

REACTIONS (8)
  - Arthropathy [Unknown]
  - Device related infection [Unknown]
  - Blood pressure abnormal [Unknown]
  - Spinal stenosis [Unknown]
  - Lung neoplasm malignant [Unknown]
  - Renal disorder [Unknown]
  - Cardiac disorder [Unknown]
  - Neuropathy peripheral [Unknown]
